FAERS Safety Report 7249862-3 (Version None)
Quarter: 2011Q1

REPORT INFORMATION
  Report Type: 
  Country: None (occurrence: None)
  Receive Date: 20110128
  Receipt Date: 20100527
  Transmission Date: 20110831
  Serious: No
  Sender: FDA-Public Use
  Company Number: A0867199A

PATIENT
  Sex: Female

DRUGS (1)
  1. WELLBUTRIN XL [Suspect]
     Indication: DEPRESSION
     Dosage: 150MG PER DAY
     Route: 065

REACTIONS (4)
  - CONDITION AGGRAVATED [None]
  - POLLAKIURIA [None]
  - URINARY INCONTINENCE [None]
  - DYSURIA [None]
